FAERS Safety Report 10421013 (Version 1)
Quarter: 2014Q3

REPORT INFORMATION
  Report Type: Spontaneous
  Country: US (occurrence: None)
  Receive Date: 20140722
  Receipt Date: 20140722
  Transmission Date: 20150326
  Serious: Yes (Other)
  Sender: FDA-Public Use
  Company Number: 163-10004-14055623

PATIENT
  Age: 40 Year
  Sex: Female

DRUGS (3)
  1. MELOXICAM. [Concomitant]
     Active Substance: MELOXICAM
  2. OTEZLA [Suspect]
     Active Substance: APREMILAST
     Indication: PSORIATIC ARTHROPATHY
     Route: 048
     Dates: start: 20140515, end: 20140521
  3. COLCRYS [Concomitant]
     Active Substance: COLCHICINE

REACTIONS (3)
  - Weight decreased [None]
  - Depression [None]
  - Diarrhoea [None]

NARRATIVE: CASE EVENT DATE: 20140517
